FAERS Safety Report 4584371-1 (Version None)
Quarter: 2005Q1

REPORT INFORMATION
  Report Type: 
  Country: None (occurrence: None)
  Receive Date: 20050216
  Receipt Date: 20050124
  Transmission Date: 20050727
  Serious: No
  Sender: FDA-Public Use
  Company Number: AU-BRISTOL-MYERS SQUIBB COMPANY-12834818

PATIENT
  Age: 33 Year
  Sex: Female

DRUGS (4)
  1. TAXOL [Suspect]
     Indication: BREAST CANCER METASTATIC
     Route: 042
  2. HERCEPTIN [Concomitant]
     Indication: BREAST CANCER METASTATIC
     Route: 042
     Dates: start: 20041118, end: 20041118
  3. DEXAMETHASONE [Concomitant]
     Indication: PREMEDICATION
  4. ANZEMET [Concomitant]
     Indication: PREMEDICATION

REACTIONS (1)
  - COUGH [None]
